FAERS Safety Report 5636634-6 (Version None)
Quarter: 2008Q1

REPORT INFORMATION
  Report Type: 
  Country: None (occurrence: None)
  Receive Date: 20080225
  Receipt Date: 20080215
  Transmission Date: 20080703
  Serious: Yes (Other)
  Sender: FDA-Public Use
  Company Number: FR-ASTRAZENECA-2008CG00132

PATIENT
  Age: 22029 Day
  Sex: Female

DRUGS (9)
  1. ARIMIDEX [Suspect]
     Indication: BREAST CANCER FEMALE
     Route: 048
     Dates: start: 20051101, end: 20080101
  2. ASPEGIC 1000 [Concomitant]
  3. SOTALOL HCL [Concomitant]
  4. ALDALIX [Concomitant]
  5. DAFALGAN [Concomitant]
  6. ACTONEL [Concomitant]
  7. CHONDROSULF [Concomitant]
  8. FERROGRAD [Concomitant]
  9. LEVOTHYROX [Concomitant]
     Indication: HYPOTHYROIDISM
     Dosage: 125 MICROGRAMS SIX DAYS PER WEEK AND 150 MICROGRAMS EVERY SUNDAY
     Route: 048

REACTIONS (2)
  - HYPOGLYCAEMIA [None]
  - HYPOTHYROIDISM [None]
